FAERS Safety Report 17520259 (Version 1)
Quarter: 2020Q1

REPORT INFORMATION
  Report Type: Spontaneous
  Country: US (occurrence: US)
  Receive Date: 20200309
  Receipt Date: 20200309
  Transmission Date: 20200409
  Serious: No
  Sender: FDA-Public Use
  Company Number: US-TEVA-2020-US-1194859

PATIENT
  Age: 91 Year
  Sex: Female

DRUGS (1)
  1. DESIPRAMINE HYDROCHLORIDE. [Suspect]
     Active Substance: DESIPRAMINE HYDROCHLORIDE
     Indication: DEPRESSION
     Route: 065
     Dates: start: 20191229

REACTIONS (5)
  - Product quality issue [Unknown]
  - Product dose omission [Unknown]
  - Insomnia [Recovered/Resolved]
  - Product physical issue [Unknown]
  - Headache [Recovered/Resolved]
